FAERS Safety Report 15654791 (Version 2)
Quarter: 2018Q4

REPORT INFORMATION
  Report Type: Report from Study
  Country: None (occurrence: CA)
  Receive Date: 20181126
  Receipt Date: 20181213
  Transmission Date: 20190205
  Serious: No
  Sender: FDA-Public Use
  Company Number: CA-ABBVIE-18K-028-2564347-00

PATIENT
  Sex: Female

DRUGS (2)
  1. HUMIRA [Suspect]
     Active Substance: ADALIMUMAB
     Indication: PSORIATIC ARTHROPATHY
     Route: 058
     Dates: start: 20180828, end: 20181011
  2. HUMIRA [Suspect]
     Active Substance: ADALIMUMAB
     Route: 058
     Dates: start: 20181101

REACTIONS (12)
  - Swelling [Not Recovered/Not Resolved]
  - Arthralgia [Unknown]
  - Papule [Not Recovered/Not Resolved]
  - Drug ineffective [Not Recovered/Not Resolved]
  - Spinal pain [Unknown]
  - Pain [Unknown]
  - Dysstasia [Unknown]
  - Erythema [Not Recovered/Not Resolved]
  - Dizziness [Unknown]
  - Psoriasis [Unknown]
  - Nausea [Unknown]
  - Injection site urticaria [Not Recovered/Not Resolved]

NARRATIVE: CASE EVENT DATE: 2018
